FAERS Safety Report 20371821 (Version 2)
Quarter: 2022Q1

REPORT INFORMATION
  Report Type: Spontaneous
  Country: IN (occurrence: IN)
  Receive Date: 20220124
  Receipt Date: 20220127
  Transmission Date: 20220423
  Serious: Yes (Death)
  Sender: FDA-Public Use
  Company Number: IN-PFIZER INC-2019016556

PATIENT
  Age: 36 Year
  Sex: Male

DRUGS (4)
  1. SUTENT [Suspect]
     Active Substance: SUNITINIB MALATE
     Indication: Metastatic renal cell carcinoma
     Dosage: 50 MG, CYCLIC (ONCE A DAY, 2 WEEKS ON AND 1 WEEK OFF)
     Route: 048
  2. SUTENT [Suspect]
     Active Substance: SUNITINIB MALATE
     Dosage: 37.5 MG, CYCLIC (1X/DAY, 2 WEEKS ON AND 1 WEEK OFF)
     Route: 048
     Dates: start: 20190107
  3. DOMPERIDONE\ESOMEPRAZOLE MAGNESIUM [Concomitant]
     Active Substance: DOMPERIDONE\ESOMEPRAZOLE MAGNESIUM
     Dosage: 1 DF, 1X/DAY
  4. ZYTEE [BENZALKONIUM CHLORIDE;CHOLINE SALICYLATE] [Concomitant]
     Dosage: UNK

REACTIONS (6)
  - Death [Fatal]
  - Mucosal inflammation [Unknown]
  - Cough [Unknown]
  - Pleural effusion [Unknown]
  - Pain [Recovering/Resolving]
  - Dermatitis acneiform [Unknown]

NARRATIVE: CASE EVENT DATE: 20200926
